FAERS Safety Report 4515698-7 (Version None)
Quarter: 2004Q4

REPORT INFORMATION
  Report Type: 
  Country: None (occurrence: None)
  Receive Date: 20041201
  Receipt Date: 20041014
  Transmission Date: 20050328
  Serious: Yes (Hospitalization)
  Sender: FDA-Public Use
  Company Number: DE-MERCK-0410DEU00481

PATIENT
  Age: 52 Year
  Sex: Male

DRUGS (1)
  1. VIOXX [Suspect]
     Indication: LOCALISED OSTEOARTHRITIS
     Route: 048
     Dates: start: 20040709, end: 20040822

REACTIONS (4)
  - DEEP VEIN THROMBOSIS [None]
  - INTERNATIONAL NORMALISED RATIO DECREASED [None]
  - PROTHROMBIN TIME SHORTENED [None]
  - VENOUS INSUFFICIENCY [None]
